FAERS Safety Report 6105091-8 (Version None)
Quarter: 2009Q1

REPORT INFORMATION
  Report Type: 
  Country: None (occurrence: None)
  Receive Date: 20090306
  Receipt Date: 20090227
  Transmission Date: 20090719
  Serious: Yes (Hospitalization)
  Sender: FDA-Public Use
  Company Number: US-ROCHE-617811

PATIENT
  Age: 42 Year
  Sex: Female

DRUGS (2)
  1. KLONOPIN [Suspect]
     Indication: INSOMNIA
     Route: 065
  2. OPANA ER [Suspect]
     Route: 048
     Dates: start: 20081201, end: 20090201

REACTIONS (1)
  - RESPIRATORY ARREST [None]
